FAERS Safety Report 4635075-8 (Version None)
Quarter: 2005Q2

REPORT INFORMATION
  Report Type: 
  Country: None (occurrence: None)
  Receive Date: 20050411
  Receipt Date: 20050331
  Transmission Date: 20051028
  Serious: Yes (Death, Hospitalization)
  Sender: FDA-Public Use
  Company Number: 163-20785-05040013

PATIENT
  Age: 72 Year
  Sex: Male
  Weight: 84.369 kg

DRUGS (3)
  1. THALOMID [Suspect]
     Indication: MYELODYSPLASTIC SYNDROME
     Dosage: 50 MG, QD, ORAL
     Route: 048
     Dates: start: 20050311, end: 20050330
  2. VIDAZA [Suspect]
     Indication: MYELODYSPLASTIC SYNDROME
     Dosage: 150 MG, SUBCUTANEOUS
     Route: 058
     Dates: start: 20050307, end: 20050311
  3. VIDAZA [Suspect]
     Indication: REFRACTORY ANAEMIA WITH AN EXCESS OF BLASTS
     Dosage: 150 MG, SUBCUTANEOUS
     Route: 058
     Dates: start: 20050307, end: 20050311

REACTIONS (8)
  - ABDOMINAL PAIN [None]
  - ACUTE ABDOMEN [None]
  - ADHESION [None]
  - ENTERITIS [None]
  - GASTROINTESTINAL DISORDER [None]
  - HYPOTENSION [None]
  - INTESTINAL OBSTRUCTION [None]
  - SEPSIS [None]
